FAERS Safety Report 4518125-9 (Version None)
Quarter: 2004Q4

REPORT INFORMATION
  Report Type: 
  Country: None (occurrence: None)
  Receive Date: 20041130
  Receipt Date: 20041119
  Transmission Date: 20050328
  Serious: Yes (Disabling, Other)
  Sender: FDA-Public Use
  Company Number: 2004097235

PATIENT
  Age: 63 Year
  Sex: Female

DRUGS (6)
  1. OESTRING (RING)  (ESTRADIOL) [Suspect]
     Indication: MENOPAUSAL SYMPTOMS
     Dosage: 2 MG (2 MG, EVERY THREE MONTHS), VAGINAL
     Route: 067
     Dates: start: 19960101
  2. LEVOTHROID [Concomitant]
  3. ZOCOR [Concomitant]
  4. TAMOXIFEN (TAMOXIFEN) [Concomitant]
  5. FEMARA [Concomitant]
  6. MEDROXYPROGESTERONE [Concomitant]

REACTIONS (2)
  - CEREBROVASCULAR ACCIDENT [None]
  - INTRACRANIAL ANEURYSM [None]
